FAERS Safety Report 11138278 (Version 1)
Quarter: 2015Q2

REPORT INFORMATION
  Report Type: Report from Study
  Country: TW (occurrence: TW)
  Receive Date: 20150526
  Receipt Date: 20150526
  Transmission Date: 20150821
  Serious: Yes (Hospitalization, Other)
  Sender: FDA-Public Use
  Company Number: PHHO2011TW10419

PATIENT
  Age: 67 Year
  Sex: Male
  Weight: 76 kg

DRUGS (51)
  1. BLINDED ENALAPRIL [Suspect]
     Active Substance: ENALAPRIL
     Dosage: CODE NOT BROKEN
     Route: 048
     Dates: start: 20111123, end: 20111227
  2. IPRATROPIUM [Concomitant]
     Active Substance: IPRATROPIUM
     Indication: BRONCHITIS CHRONIC
     Dosage: 0.5 MG, TID,PRN
     Route: 055
     Dates: start: 20110610, end: 20110616
  3. TERBUTALINE [Concomitant]
     Active Substance: TERBUTALINE
     Indication: BRONCHITIS CHRONIC
     Dosage: 5 MG, TID,PRN
     Route: 055
     Dates: start: 20110610, end: 20110616
  4. LOSARTAN POTASSIUM. [Concomitant]
     Active Substance: LOSARTAN POTASSIUM
     Indication: CARDIAC FAILURE
     Dosage: 50 MG, QD
     Route: 048
     Dates: start: 20040806
  5. PROCTOSEDYL [Concomitant]
     Active Substance: DIBUCAINE HYDROCHLORIDE\HYDROCORTISONE
     Indication: HAEMORRHOIDS
     Dosage: 1 QS STAF
     Route: 065
     Dates: start: 20110617, end: 20110619
  6. FLEET NOS [Concomitant]
     Active Substance: BISACODYL OR GLYCERIN OR MINERAL OIL OR SODIUM PHOSPHATE, DIBASIC\SODIUM PHOSPHATE, MONOBASIC
     Dosage: 118 ML, (1 PC STAT)
     Route: 065
     Dates: start: 20110710, end: 20110711
  7. MAGNESIUM OXIDE. [Concomitant]
     Active Substance: MAGNESIUM OXIDE
     Indication: CONSTIPATION
     Dosage: 250 MG, TID (1 PC)
     Route: 065
     Dates: start: 20110704
  8. ENALAPRIL [Concomitant]
     Active Substance: ENALAPRIL
     Indication: CARDIAC FAILURE CONGESTIVE
     Dosage: 5 MG, BID
     Route: 048
     Dates: start: 20111026, end: 20111123
  9. BLINDED NO TREATMENT RECEIVED [Suspect]
     Active Substance: UNSPECIFIED INGREDIENT
     Dosage: CODE NOT BROKEN
     Route: 048
     Dates: start: 20111123, end: 20111227
  10. COLCHICINE. [Concomitant]
     Active Substance: COLCHICINE
     Indication: GOUT
     Dosage: 1 DF, QD (0.5 MG STAT)
     Route: 065
     Dates: start: 20110621, end: 20110622
  11. ULTRACET [Concomitant]
     Active Substance: ACETAMINOPHEN\TRAMADOL HYDROCHLORIDE
     Indication: GOUT
     Dosage: 1 DF, Q6H
     Route: 062
     Dates: start: 20110621, end: 20110622
  12. ULTRACET [Concomitant]
     Active Substance: ACETAMINOPHEN\TRAMADOL HYDROCHLORIDE
     Dosage: 1 DF, STAT
     Route: 048
     Dates: start: 20110621, end: 20110622
  13. FLEET NOS [Concomitant]
     Active Substance: BISACODYL OR GLYCERIN OR MINERAL OIL OR SODIUM PHOSPHATE, DIBASIC\SODIUM PHOSPHATE, MONOBASIC
     Dosage: 118 ML, (1 PC STAT)
     Route: 065
     Dates: start: 20110704, end: 20110705
  14. FLEET NOS [Concomitant]
     Active Substance: BISACODYL OR GLYCERIN OR MINERAL OIL OR SODIUM PHOSPHATE, DIBASIC\SODIUM PHOSPHATE, MONOBASIC
     Dosage: 118 ML, (1 PC STAT)
     Route: 065
     Dates: start: 20110728, end: 20110729
  15. BLINDED ALISKIREN [Suspect]
     Active Substance: ALISKIREN
     Indication: CARDIAC FAILURE
     Dosage: CODE NOT BROKEN
     Route: 048
     Dates: start: 20100106, end: 20110611
  16. BLINDED ENALAPRIL [Suspect]
     Active Substance: ENALAPRIL
     Indication: CARDIAC FAILURE
     Dosage: CODE NOT BROKEN
     Route: 048
     Dates: start: 20100106, end: 20110611
  17. BLINDED NO TREATMENT RECEIVED [Suspect]
     Active Substance: UNSPECIFIED INGREDIENT
     Indication: CARDIAC FAILURE
     Dosage: CODE NOT BROKEN
     Route: 048
     Dates: start: 20100106, end: 20110611
  18. BLINDED ALISKIREN [Suspect]
     Active Substance: ALISKIREN
     Dosage: CODE NOT BROKEN
     Route: 048
     Dates: start: 20111123, end: 20111227
  19. ACETAMINOPHEN. [Concomitant]
     Active Substance: ACETAMINOPHEN
     Indication: PYREXIA
     Dosage: 500 MG, Q6H
     Route: 048
     Dates: start: 20110611, end: 20110612
  20. ZOLPIDEM [Concomitant]
     Active Substance: ZOLPIDEM\ZOLPIDEM TARTRATE
     Indication: INSOMNIA
     Dosage: 1 DF(100MG 1PC STAT)
     Route: 048
     Dates: start: 20110614, end: 20110615
  21. SENNOSIDE [Concomitant]
     Active Substance: SENNOSIDES
     Indication: CONSTIPATION
     Dosage: 2 DF, HS
     Route: 048
     Dates: start: 20110619
  22. HYDROCORTISONE SODIUM SUCCINATE [Concomitant]
     Active Substance: HYDROCORTISONE SODIUM SUCCINATE
     Indication: ASTHMA
     Dosage: 1 DF,(100 MG 1 PC STAT)
     Route: 065
     Dates: start: 20110621, end: 20110622
  23. HYDROCORTISONE SODIUM SUCCINATE [Concomitant]
     Active Substance: HYDROCORTISONE SODIUM SUCCINATE
     Dosage: 0.5 DF,(100 MG 0.5 PC STAF)
     Route: 065
     Dates: start: 20110704, end: 20110705
  24. BISACODYL. [Concomitant]
     Active Substance: BISACODYL
     Dosage: 10 MG, SUPP STAF
     Route: 065
     Dates: start: 20110630, end: 20110701
  25. FLEET NOS [Concomitant]
     Active Substance: BISACODYL OR GLYCERIN OR MINERAL OIL OR SODIUM PHOSPHATE, DIBASIC\SODIUM PHOSPHATE, MONOBASIC
     Indication: CONSTIPATION
     Dosage: 118 ML, (1 PC STAT)
     Route: 065
     Dates: start: 20110625, end: 20110626
  26. FLEET NOS [Concomitant]
     Active Substance: BISACODYL OR GLYCERIN OR MINERAL OIL OR SODIUM PHOSPHATE, DIBASIC\SODIUM PHOSPHATE, MONOBASIC
     Dosage: 118 ML, (1 PC STAT)
     Route: 065
     Dates: start: 20110721, end: 20110724
  27. PROCTOSEDYL [Concomitant]
     Active Substance: DIBUCAINE HYDROCHLORIDE\HYDROCORTISONE
     Dosage: 15 GM 1QS STAF
     Route: 065
     Dates: start: 20110702, end: 20110703
  28. METHYLPREDNISOLONE. [Concomitant]
     Active Substance: METHYLPREDNISOLONE
     Dosage: 1 DF, (40 MG STAT)
     Route: 042
     Dates: start: 20110623, end: 20110624
  29. FLEET NOS [Concomitant]
     Active Substance: BISACODYL OR GLYCERIN OR MINERAL OIL OR SODIUM PHOSPHATE, DIBASIC\SODIUM PHOSPHATE, MONOBASIC
     Dosage: 118 ML, (1 PC STAT)
     Route: 065
     Dates: start: 20110701, end: 20110703
  30. CEFEPIME [Concomitant]
     Active Substance: CEFEPIME\CEFEPIME HYDROCHLORIDE
     Indication: NOSOCOMIAL INFECTION
     Dosage: 500 MG, Q8H
     Route: 042
     Dates: start: 20110610, end: 20110613
  31. ACETAMINOPHEN. [Concomitant]
     Active Substance: ACETAMINOPHEN
     Dosage: 500 MG 1PC TID
     Route: 048
     Dates: start: 20110712, end: 20110713
  32. HYDRALAZINE HYDROCHLORIDE. [Concomitant]
     Active Substance: HYDRALAZINE HYDROCHLORIDE
     Dosage: 50 MG, QD, 0.5PC
     Route: 048
     Dates: start: 20110613, end: 20110614
  33. METHYLPREDNISOLONE. [Concomitant]
     Active Substance: METHYLPREDNISOLONE
     Indication: BRONCHITIS CHRONIC
     Dosage: 0.5 DF, Q12H (40 MG)
     Route: 042
     Dates: start: 20110619, end: 20110620
  34. BISACODYL. [Concomitant]
     Active Substance: BISACODYL
     Dosage: 1 MG, SUPP STAF
     Route: 065
     Dates: start: 20110629, end: 20110630
  35. FLEET NOS [Concomitant]
     Active Substance: BISACODYL OR GLYCERIN OR MINERAL OIL OR SODIUM PHOSPHATE, DIBASIC\SODIUM PHOSPHATE, MONOBASIC
     Dosage: 118 ML,(1 PC STAT)
     Route: 065
     Dates: start: 20110628, end: 20110629
  36. HYDRALAZINE HYDROCHLORIDE. [Concomitant]
     Active Substance: HYDRALAZINE HYDROCHLORIDE
     Indication: CARDIAC FAILURE CONGESTIVE
     Dosage: 10 MG, QD
     Route: 048
     Dates: start: 20110611, end: 20110613
  37. MIDAZOLAM [Concomitant]
     Active Substance: MIDAZOLAM\MIDAZOLAM HYDROCHLORIDE
     Indication: INSOMNIA
     Dosage: 5 MG, (1 PC STAT)
     Route: 042
     Dates: start: 20110613, end: 20110614
  38. ULTRACET [Concomitant]
     Active Substance: ACETAMINOPHEN\TRAMADOL HYDROCHLORIDE
     Dosage: 1 DF, STAT
     Route: 048
     Dates: start: 20110624, end: 20110625
  39. FLEET NOS [Concomitant]
     Active Substance: BISACODYL OR GLYCERIN OR MINERAL OIL OR SODIUM PHOSPHATE, DIBASIC\SODIUM PHOSPHATE, MONOBASIC
     Dosage: 118 ML, (1 PC STAT)
     Route: 065
     Dates: start: 20110717, end: 20110718
  40. ACETYLCYSTEIN AL [Concomitant]
     Indication: BRONCHITIS CHRONIC
     Dosage: 600 MG, STAT
     Route: 065
     Dates: start: 20110628, end: 20110629
  41. BISOPROLOL [Concomitant]
     Active Substance: BISOPROLOL
     Indication: CARDIAC FAILURE CONGESTIVE
     Dosage: 1.25 MG, QD
     Route: 048
     Dates: start: 20091014
  42. FUROSEMIDE. [Concomitant]
     Active Substance: FUROSEMIDE
     Indication: CARDIAC FAILURE
     Dosage: 40 MG, IRRE
     Route: 048
     Dates: start: 20040806
  43. SPIRONOLACTONE. [Concomitant]
     Active Substance: SPIRONOLACTONE
     Indication: CARDIAC FAILURE
     Dosage: 25 MG, QD
     Route: 048
     Dates: start: 20040806
  44. BISACODYL. [Concomitant]
     Active Substance: BISACODYL
     Indication: CONSTIPATION
     Dosage: 1 DF, STAF SUP
     Route: 065
     Dates: start: 20110625, end: 20110626
  45. DOBUTAMINE HYDROCHLORIDE. [Concomitant]
     Active Substance: DOBUTAMINE HYDROCHLORIDE
     Indication: CARDIAC FAILURE CONGESTIVE
     Dosage: 250 MG, TID (4 PC)
     Route: 065
     Dates: start: 20110630, end: 20110712
  46. IBUPROFEN. [Concomitant]
     Active Substance: IBUPROFEN
     Indication: PYREXIA
     Dosage: 400 MG, TID (1 PC)
     Route: 065
     Dates: start: 20110704, end: 20110706
  47. ACETAMINOPHEN. [Concomitant]
     Active Substance: ACETAMINOPHEN
     Dosage: 500 MG 1PC STAT
     Route: 048
     Dates: start: 20110621, end: 20110622
  48. QUETIAPINE [Concomitant]
     Active Substance: QUETIAPINE
     Indication: INSOMNIA
     Dosage: 25 MG,1 PC HS
     Dates: start: 20110613, end: 20110713
  49. AMBROXOL HYDROCHLORIDE [Concomitant]
     Active Substance: AMBROXOL HYDROCHLORIDE
     Indication: BRONCHITIS CHRONIC
     Dosage: 30 MG, TID (1 PC)
     Route: 065
     Dates: start: 20110625, end: 20110627
  50. ACETYLCYSTEIN AL [Concomitant]
     Dosage: 600 MG, BID (2PC)
     Route: 065
     Dates: start: 20110628, end: 20110629
  51. CEFAZOLIN SODIUM. [Concomitant]
     Active Substance: CEFAZOLIN SODIUM
     Indication: NOSOCOMIAL INFECTION
     Dosage: 500 MG, 4 PC STAT
     Route: 042
     Dates: start: 20110711, end: 20110718

REACTIONS (2)
  - Cardiac failure congestive [Recovering/Resolving]
  - Ventricular fibrillation [Recovered/Resolved]

NARRATIVE: CASE EVENT DATE: 20110601
